FAERS Safety Report 8159972-4 (Version None)
Quarter: 2012Q1

REPORT INFORMATION
  Report Type: 
  Country: None (occurrence: None)
  Receive Date: 20120223
  Receipt Date: 20120216
  Transmission Date: 20120608
  Serious: Yes (Hospitalization)
  Sender: FDA-Public Use
  Company Number: US-GLAXOSMITHKLINE-A0886431A

PATIENT
  Sex: Male
  Weight: 137.3 kg

DRUGS (8)
  1. FLOMAX [Concomitant]
  2. LISINOPRIL [Concomitant]
  3. NEURONTIN [Concomitant]
  4. AVANDIA [Suspect]
     Indication: DIABETES MELLITUS
     Dosage: 8MG PER DAY
     Route: 048
     Dates: start: 19990101, end: 20100101
  5. CIMETIDINE [Concomitant]
  6. MAXZIDE [Concomitant]
  7. INSULIN [Concomitant]
  8. GLIPIZIDE [Concomitant]

REACTIONS (5)
  - CHEST PAIN [None]
  - ASTHENIA [None]
  - AMNESIA [None]
  - DEPRESSION [None]
  - MYOCARDIAL ISCHAEMIA [None]
